FAERS Safety Report 8930541 (Version 1)
Quarter: 2012Q4

REPORT INFORMATION
  Report Type: 
  Country: BR (occurrence: BR)
  Receive Date: 20121128
  Receipt Date: 20121128
  Transmission Date: 20130627
  Serious: Yes (Other)
  Sender: FDA-Public Use
  Company Number: PHHY2012BR109063

PATIENT
  Sex: Male

DRUGS (2)
  1. TRILEPTAL [Suspect]
  2. TEGRETOL [Suspect]

REACTIONS (2)
  - Gout [Unknown]
  - Pain [Unknown]
